FAERS Safety Report 14107465 (Version 2)
Quarter: 2017Q4

REPORT INFORMATION
  Report Type: Spontaneous
  Country: US (occurrence: US)
  Receive Date: 20171019
  Receipt Date: 20171101
  Transmission Date: 20180321
  Serious: Yes (Hospitalization)
  Sender: FDA-Public Use
  Company Number: US-FRESENIUS MEDICAL CARE RENAL THERAPIES GROUP-FMC-1710-001182

PATIENT
  Sex: Male
  Weight: 92 kg

DRUGS (1)
  1. DELFLEX [Suspect]
     Active Substance: CALCIUM CHLORIDE\DEXTROSE\MAGNESIUM CHLORIDE\SODIUM CHLORIDE\SODIUM LACTATE
     Indication: END STAGE RENAL DISEASE
     Dates: start: 20160210

REACTIONS (4)
  - Generalised oedema [Recovering/Resolving]
  - Pericardial effusion [Recovering/Resolving]
  - Hernia [Unknown]
  - Peritonitis bacterial [Recovered/Resolved]
